FAERS Safety Report 9419815 (Version 1)
Quarter: 2013Q3

REPORT INFORMATION
  Report Type: Spontaneous
  Country: US (occurrence: US)
  Receive Date: 20130725
  Receipt Date: 20130725
  Transmission Date: 20140515
  Serious: Yes (Other)
  Sender: FDA-Public Use
  Company Number: US-ELI_LILLY_AND_COMPANY-US201307005281

PATIENT
  Sex: Female

DRUGS (8)
  1. CYMBALTA [Suspect]
     Indication: FIBROMYALGIA
     Dosage: 30 MG, BID
     Dates: start: 2008, end: 201201
  2. CYMBALTA [Suspect]
     Indication: PAIN
  3. LEVOTHYROXINE [Concomitant]
  4. TRIAZOLAM [Concomitant]
  5. ALZAPAM [Concomitant]
  6. OXYCODONE [Concomitant]
  7. XANAX [Concomitant]
  8. LYRICA [Concomitant]

REACTIONS (16)
  - Bedridden [Unknown]
  - Gingival erosion [Unknown]
  - Delusional disorder, somatic type [Unknown]
  - Stevens-Johnson syndrome [Recovered/Resolved]
  - Serotonin syndrome [Recovered/Resolved]
  - Haemorrhage [Recovered/Resolved]
  - Otorrhoea [Recovered/Resolved]
  - Constipation [Unknown]
  - Intentional drug misuse [Unknown]
  - Parosmia [Unknown]
  - Dysgeusia [Unknown]
  - Ageusia [Unknown]
  - Hypothyroidism [Unknown]
  - Drug withdrawal syndrome [Unknown]
  - Paraesthesia [Recovered/Resolved]
  - Nausea [Unknown]
